FAERS Safety Report 7128943-9 (Version None)
Quarter: 2010Q4

REPORT INFORMATION
  Report Type: 
  Country: None (occurrence: None)
  Receive Date: 20101130
  Receipt Date: 20101124
  Transmission Date: 20110411
  Serious: Yes (Other)
  Sender: FDA-Public Use
  Company Number: B0686225A

PATIENT

DRUGS (3)
  1. SERETIDE [Suspect]
     Indication: ASTHMA
     Route: 055
  2. FLIXOTIDE [Suspect]
     Indication: ASTHMA
     Route: 055
  3. ORAL STEROIDS [Concomitant]

REACTIONS (1)
  - ADRENAL SUPPRESSION [None]
